FAERS Safety Report 8249281-7 (Version None)
Quarter: 2012Q1

REPORT INFORMATION
  Report Type: 
  Country: None (occurrence: None)
  Receive Date: 20120327
  Receipt Date: 20120320
  Transmission Date: 20120608
  Serious: Yes (Other)
  Sender: FDA-Public Use
  Company Number: 2012-027937

PATIENT
  Age: 75 Year
  Sex: Female
  Weight: 76 kg

DRUGS (1)
  1. ASPIRIN [Suspect]
     Indication: BACK PAIN
     Dosage: 2, ORAL
     Route: 048
     Dates: start: 20120315, end: 20120315

REACTIONS (4)
  - CHEST DISCOMFORT [None]
  - FAECES DISCOLOURED [None]
  - BLOOD PRESSURE INCREASED [None]
  - THROAT IRRITATION [None]
